FAERS Safety Report 17987809 (Version 4)
Quarter: 2020Q4

REPORT INFORMATION
  Report Type: Spontaneous
  Country: PL (occurrence: PL)
  Receive Date: 20200707
  Receipt Date: 20201202
  Transmission Date: 20210113
  Serious: Yes (Hospitalization)
  Sender: FDA-Public Use
  Company Number: NVSC2020PL158733

PATIENT
  Age: 35 Year
  Sex: Male
  Weight: 27 kg

DRUGS (2)
  1. METFORMIN [Suspect]
     Active Substance: METFORMIN HYDROCHLORIDE
     Indication: TYPE 2 DIABETES MELLITUS
     Dosage: 1000 MG, TID, EVERY SECOND DAY
     Route: 048
  2. METFORMIN [Suspect]
     Active Substance: METFORMIN HYDROCHLORIDE
     Dosage: 3 DF, QD REGULARLY
     Route: 065

REACTIONS (15)
  - Asthenia [Recovered/Resolved]
  - Abdominal pain [Recovered/Resolved]
  - Product dose omission issue [Unknown]
  - Drug ineffective [Recovered/Resolved]
  - Product use issue [Recovered/Resolved]
  - Blood glucose fluctuation [Unknown]
  - Nausea [Recovered/Resolved]
  - Diarrhoea [Recovered/Resolved]
  - Inappropriate schedule of product administration [Unknown]
  - Product administration error [Unknown]
  - Underdose [Recovered/Resolved]
  - Hyperhidrosis [Recovered/Resolved]
  - Abdominal pain upper [Recovered/Resolved]
  - Diabetes mellitus inadequate control [Recovered/Resolved]
  - Intentional product misuse [Unknown]
